FAERS Safety Report 17598105 (Version 2)
Quarter: 2020Q2

REPORT INFORMATION
  Report Type: Spontaneous
  Country: US (occurrence: US)
  Receive Date: 20200330
  Receipt Date: 20200422
  Transmission Date: 20200713
  Serious: No
  Sender: FDA-Public Use
  Company Number: US-ALNYLAM PHARMACEUTICALS, INC.-ALN-2020-000362

PATIENT
  Age: 38 Year
  Sex: Female

DRUGS (1)
  1. GIVLAARI [Suspect]
     Active Substance: GIVOSIRAN SODIUM
     Indication: PORPHYRIA ACUTE
     Dosage: 2.5 MILLIGRAM/KILOGRAM, ONCE MONTHLY
     Route: 058
     Dates: start: 20200225

REACTIONS (2)
  - Headache [Unknown]
  - Dizziness [Unknown]

NARRATIVE: CASE EVENT DATE: 20200310
